FAERS Safety Report 14511645 (Version 7)
Quarter: 2018Q2

REPORT INFORMATION
  Report Type: Report from Study
  Country: US (occurrence: US)
  Receive Date: 20180209
  Receipt Date: 20180607
  Transmission Date: 20180711
  Serious: Yes (Death, Hospitalization)
  Sender: FDA-Public Use
  Company Number: US-EISAI MEDICAL RESEARCH-EC-2018-035873

PATIENT
  Age: 67 Year
  Sex: Male
  Weight: 73.4 kg

DRUGS (27)
  1. COLCHICINE. [Concomitant]
     Active Substance: COLCHICINE
  2. IPRATROPIUM-ALBUTEROL [Concomitant]
     Active Substance: ALBUTEROL\IPRATROPIUM
  3. LENVATINIB [Suspect]
     Active Substance: LENVATINIB
     Indication: CLEAR CELL RENAL CELL CARCINOMA
     Route: 048
     Dates: start: 20170913, end: 20180130
  4. EVEROLIMUS. [Suspect]
     Active Substance: EVEROLIMUS
     Indication: CLEAR CELL RENAL CELL CARCINOMA
     Route: 048
     Dates: start: 20170913, end: 20180130
  5. ZOFRAN [Concomitant]
     Active Substance: ONDANSETRON HYDROCHLORIDE
  6. PREDNISONE. [Concomitant]
     Active Substance: PREDNISONE
  7. GLUCOPHAGE [Concomitant]
     Active Substance: METFORMIN HYDROCHLORIDE
  8. OXYCODONE-ACETAMINOPHEN [Concomitant]
     Active Substance: ACETAMINOPHEN\OXYCODONE HYDROCHLORIDE
  9. LOMOTIL [Concomitant]
     Active Substance: ATROPINE SULFATE\DIPHENOXYLATE HYDROCHLORIDE
  10. TESSALON [Concomitant]
     Active Substance: BENZONATATE
  11. ATORVASTATIN [Concomitant]
     Active Substance: ATORVASTATIN
  12. BIOTIN [Concomitant]
     Active Substance: BIOTIN
  13. FLONASE [Concomitant]
     Active Substance: FLUTICASONE PROPIONATE
  14. OMEGA 3 FATTY ACIDS [Concomitant]
     Active Substance: OMEGA-3 FATTY ACIDS
  15. MULTIPLE VITAMINS-MINERALS [Concomitant]
  16. MEGESTROL [Concomitant]
     Active Substance: MEGESTROL
  17. ANUSOL-HC [Concomitant]
  18. SULFAMETHOXAZOLE/TRIMETHOPRIM [Concomitant]
     Active Substance: SULFAMETHOXAZOLE\TRIMETHOPRIM
  19. GUAIFENESIN. [Concomitant]
     Active Substance: GUAIFENESIN
  20. SINGULAIR [Concomitant]
     Active Substance: MONTELUKAST SODIUM
  21. HYDROCODONE-HOMATROPINE [Concomitant]
  22. AMLODIPINE [Concomitant]
     Active Substance: AMLODIPINE BESYLATE
  23. ALBUTEROL SULFATE. [Concomitant]
     Active Substance: ALBUTEROL SULFATE
  24. ASTELIN [Concomitant]
     Active Substance: AZELASTINE HYDROCHLORIDE
  25. SYMBICORT [Concomitant]
     Active Substance: BUDESONIDE\FORMOTEROL FUMARATE DIHYDRATE
  26. HUMALOG KWIKPEN [Concomitant]
     Active Substance: INSULIN LISPRO
  27. VENTOLIN HFA [Concomitant]
     Active Substance: ALBUTEROL SULFATE

REACTIONS (2)
  - Acute kidney injury [Not Recovered/Not Resolved]
  - Malignant neoplasm progression [Fatal]

NARRATIVE: CASE EVENT DATE: 20180202
